FAERS Safety Report 22606267 (Version 1)
Quarter: 2023Q2

REPORT INFORMATION
  Report Type: Spontaneous
  Country: US (occurrence: None)
  Receive Date: 20230614
  Receipt Date: 20230614
  Transmission Date: 20230721
  Serious: Yes (Other)
  Sender: FDA-Public Use
  Company Number: None

PATIENT
  Age: 25 Year
  Sex: Female

DRUGS (3)
  1. OLUMIANT [Suspect]
     Active Substance: BARICITINIB
     Indication: Alopecia areata
     Dosage: FREQUENCY : DAILY;?
     Route: 048
     Dates: start: 20230516
  2. CLARITIN [Concomitant]
     Active Substance: LORATADINE
  3. MOTRIN [Concomitant]
     Active Substance: IBUPROFEN

REACTIONS (3)
  - Alopecia [None]
  - Alopecia [None]
  - Condition aggravated [None]

NARRATIVE: CASE EVENT DATE: 20230614
